FAERS Safety Report 14163172 (Version 1)
Quarter: 2017Q4

REPORT INFORMATION
  Report Type: Spontaneous
  Country: US (occurrence: US)
  Receive Date: 20171106
  Receipt Date: 20171106
  Transmission Date: 20180321
  Serious: No
  Sender: FDA-Public Use
  Company Number: US-MYLANLABS-2017M1069352

PATIENT
  Age: 58 Year
  Sex: Female
  Weight: 54 kg

DRUGS (3)
  1. GASTROCROM [Suspect]
     Active Substance: CROMOLYN SODIUM
     Dosage: 1 AMPULE 3 TIMES A DAY
     Route: 048
     Dates: start: 20171025
  2. GASTROCROM [Suspect]
     Active Substance: CROMOLYN SODIUM
     Indication: PRODUCT USED FOR UNKNOWN INDICATION
     Dosage: 2 AMPULES 3 TIMES A DAY
     Route: 048
     Dates: start: 20171024, end: 20171024
  3. BOTOX [Concomitant]
     Active Substance: ONABOTULINUMTOXINA
     Indication: MIGRAINE
     Dosage: UNK

REACTIONS (3)
  - Migraine [Not Recovered/Not Resolved]
  - Diarrhoea [Recovered/Resolved]
  - Insomnia [Recovered/Resolved]

NARRATIVE: CASE EVENT DATE: 20171024
